FAERS Safety Report 21381918 (Version 1)
Quarter: 2022Q3

REPORT INFORMATION
  Report Type: Report from Study
  Country: CA (occurrence: CA)
  Receive Date: 20220927
  Receipt Date: 20220927
  Transmission Date: 20221027
  Serious: Yes (Other)
  Sender: FDA-Public Use
  Company Number: CA-TAKEDA-2022TUS027672

PATIENT
  Age: 73 Year
  Sex: Male

DRUGS (1)
  1. IXAZOMIB [Suspect]
     Active Substance: IXAZOMIB
     Indication: Plasma cell myeloma
     Dosage: 2.3 MILLIGRAM
     Route: 048
     Dates: start: 20220420

REACTIONS (13)
  - Plasma cell myeloma [Unknown]
  - Haemoglobin decreased [Unknown]
  - Gait disturbance [Unknown]
  - Laboratory test abnormal [Unknown]
  - Fatigue [Unknown]
  - Confusional state [Unknown]
  - Sleep disorder [Unknown]
  - Amnesia [Unknown]
  - Peripheral swelling [Unknown]
  - Dyspepsia [Unknown]
  - Chest discomfort [Unknown]
  - Back pain [Unknown]
  - Off label use [Unknown]

NARRATIVE: CASE EVENT DATE: 20220420
